FAERS Safety Report 7291289-2 (Version None)
Quarter: 2011Q1

REPORT INFORMATION
  Report Type: 
  Country: None (occurrence: None)
  Receive Date: 20110214
  Receipt Date: 20110131
  Transmission Date: 20110831
  Serious: Yes (Hospitalization)
  Sender: FDA-Public Use
  Company Number: AU-CELGENEUS-008-50794-11012948

PATIENT
  Sex: Male
  Weight: 70 kg

DRUGS (4)
  1. VIDAZA [Suspect]
     Route: 050
  2. EXJADE [Concomitant]
     Route: 065
  3. FERRIPROX [Concomitant]
     Route: 065
  4. VIDAZA [Suspect]
     Route: 050
     Dates: start: 20110118, end: 20110126

REACTIONS (2)
  - RENAL FAILURE ACUTE [None]
  - TUBULOINTERSTITIAL NEPHRITIS [None]
